FAERS Safety Report 18000193 (Version 1)
Quarter: 2020Q3

REPORT INFORMATION
  Report Type: Spontaneous
  Country: CN (occurrence: CN)
  Receive Date: 20200709
  Receipt Date: 20200709
  Transmission Date: 20201103
  Serious: Yes (Other)
  Sender: FDA-Public Use
  Company Number: CN-PFIZER INC-2020261413

PATIENT
  Age: 88 Year
  Sex: Male

DRUGS (3)
  1. SODIUM CHLORIDE. [Concomitant]
     Active Substance: SODIUM CHLORIDE
     Indication: PATHOLOGICAL FRACTURE
     Dosage: 100 ML, 1X/DAY
     Route: 041
     Dates: start: 20200701, end: 20200701
  2. TAZOCIN [Suspect]
     Active Substance: PIPERACILLIN SODIUM\TAZOBACTAM SODIUM
     Indication: PATHOLOGICAL FRACTURE
     Dosage: 4.5 G, 1X/DAY
     Route: 041
     Dates: start: 20200701, end: 20200701
  3. TAZOCIN [Suspect]
     Active Substance: PIPERACILLIN SODIUM\TAZOBACTAM SODIUM
     Indication: PNEUMONIA

REACTIONS (6)
  - Heart rate increased [Unknown]
  - Productive cough [Unknown]
  - Temperature intolerance [Recovered/Resolved]
  - Dyspnoea [Recovering/Resolving]
  - Hypersensitivity [Recovering/Resolving]
  - Feeling cold [Recovered/Resolved]

NARRATIVE: CASE EVENT DATE: 20200701
